FAERS Safety Report 5054188-2 (Version None)
Quarter: 2006Q3

REPORT INFORMATION
  Report Type: 
  Country: None (occurrence: None)
  Receive Date: 20060713
  Receipt Date: 20060703
  Transmission Date: 20061208
  Serious: Yes (Hospitalization)
  Sender: FDA-Public Use
  Company Number: MEDI-0004720

PATIENT
  Age: 14 Month

DRUGS (1)
  1. SYNAGIS [Suspect]
     Indication: ANTIVIRAL PROPHYLAXIS
     Dosage: 100 MG, 1 IN 1 M, INTRAMUSCULAR
     Route: 030
     Dates: start: 20051014, end: 20060201

REACTIONS (1)
  - LARYNGITIS [None]
